FAERS Safety Report 7334616-X (Version None)
Quarter: 2011Q1

REPORT INFORMATION
  Report Type: 
  Country: None (occurrence: None)
  Receive Date: 20110307
  Receipt Date: 20110224
  Transmission Date: 20110831
  Serious: Yes (Hospitalization)
  Sender: FDA-Public Use
  Company Number: US-ELI_LILLY_AND_COMPANY-US201102007219

PATIENT
  Age: 46 Year
  Sex: Male

DRUGS (3)
  1. HUMULIN R [Suspect]
     Dosage: 33 U, DAILY (1/D)
  2. LANTUS [Concomitant]
  3. HUMULIN R [Suspect]
     Indication: DIABETES MELLITUS
     Dosage: 33 U, DAILY (1/D)

REACTIONS (2)
  - HYPERGLYCAEMIA [None]
  - INCORRECT DOSE ADMINISTERED [None]
